FAERS Safety Report 6591106-X (Version None)
Quarter: 2010Q1

REPORT INFORMATION
  Report Type: 
  Country: None (occurrence: None)
  Receive Date: 20100219
  Receipt Date: 20091127
  Transmission Date: 20100710
  Serious: Yes (Death, Hospitalization)
  Sender: FDA-Public Use
  Company Number: PT-SANOFI-AVENTIS-2009SA001766

PATIENT
  Age: 47 Year
  Sex: Male

DRUGS (18)
  1. CISPLATIN [Suspect]
     Dates: start: 20091027, end: 20091027
  2. DOCETAXEL [Suspect]
     Dates: start: 20091027, end: 20091027
  3. 5-FU [Suspect]
     Dates: start: 20091027
  4. INVESTIGATIONAL DRUG [Concomitant]
     Indication: THROMBOSIS PROPHYLAXIS
     Dates: start: 20091027, end: 20091027
  5. LORAZEPAM [Concomitant]
     Indication: PROPHYLAXIS
     Dates: start: 20091027
  6. APREPITANT [Concomitant]
     Indication: PROPHYLAXIS
     Dates: start: 20091027
  7. ONDANSETRON [Concomitant]
     Indication: PROPHYLAXIS
     Dates: start: 20091027
  8. DEXAMETHASONE [Concomitant]
     Indication: PROPHYLAXIS
     Dates: start: 20091027
  9. MANNITOL [Concomitant]
     Indication: PROPHYLAXIS
     Dates: start: 20091027
  10. FUROSEMIDE [Concomitant]
     Indication: PROPHYLAXIS
     Dates: start: 20091027
  11. POTASSIUM CHLORIDE [Concomitant]
     Dates: start: 20091027
  12. MAGNESIUM SULFATE [Concomitant]
     Dates: start: 20091027
  13. PEGFILGRASTIM [Concomitant]
     Indication: PROPHYLAXIS
     Dates: start: 20091028, end: 20091028
  14. LASIX [Concomitant]
     Dates: start: 20091030, end: 20091030
  15. METOCLOPRAMIDE HYDROCHLORIDE [Concomitant]
     Indication: PROPHYLAXIS
     Dates: start: 20091030, end: 20091030
  16. RANITIDINE [Concomitant]
     Dates: start: 20091030, end: 20091030
  17. DICLOFENAC [Concomitant]
     Dates: start: 20091030, end: 20091030
  18. ENOXAPARIN SODIUM [Concomitant]
     Route: 042
     Dates: start: 20091103, end: 20091105

REACTIONS (2)
  - MALIGNANT NEOPLASM PROGRESSION [None]
  - RENAL FAILURE [None]
